FAERS Safety Report 5135460-4 (Version None)
Quarter: 2006Q4

REPORT INFORMATION
  Report Type: 
  Country: None (occurrence: None)
  Receive Date: 20061026
  Receipt Date: 20061020
  Transmission Date: 20070319
  Serious: Yes (Hospitalization)
  Sender: FDA-Public Use
  Company Number: BE-PURDUE-GBR_2006_0002545

PATIENT
  Sex: Female
  Weight: 48 kg

DRUGS (7)
  1. TRANSTEC 35 [Suspect]
     Indication: DRUG USE FOR UNKNOWN INDICATION
     Dosage: 35 MCG, Q1H
     Route: 062
  2. TRANSTEC 35 [Suspect]
     Dosage: 17.5 MCG, Q1H
     Route: 062
  3. MIRTAZAPINE [Suspect]
     Indication: DRUG USE FOR UNKNOWN INDICATION
     Dosage: 1 DF, DAILY
     Route: 065
  4. COMBIVENT [Suspect]
     Indication: DRUG USE FOR UNKNOWN INDICATION
     Route: 065
  5. LEXOTAN [Suspect]
     Indication: DRUG USE FOR UNKNOWN INDICATION
     Route: 065
  6. SPIRIVA [Concomitant]
     Indication: DRUG USE FOR UNKNOWN INDICATION
     Dosage: UNK, UNK
     Route: 065
  7. MORPHINE SULFATE [Suspect]
     Indication: DRUG USE FOR UNKNOWN INDICATION
     Route: 065

REACTIONS (6)
  - CACHEXIA [None]
  - COMA [None]
  - DRUG INTERACTION [None]
  - DRUG TOXICITY [None]
  - FALL [None]
  - PAIN [None]
